FAERS Safety Report 8614601 (Version 3)
Quarter: 2013Q4

REPORT INFORMATION
  Report Type: Spontaneous
  Country: JP (occurrence: JP)
  Receive Date: 20120614
  Receipt Date: 20131204
  Transmission Date: 20140711
  Serious: Yes (Life-Threatening, Other)
  Sender: FDA-Public Use
  Company Number: JP-ROCHE-1067903

PATIENT
  Age: 51 Year
  Sex: Male
  Weight: 63 kg

DRUGS (10)
  1. AVASTIN [Suspect]
     Indication: COLON CANCER RECURRENT
     Dosage: 11 COURSE
     Route: 041
     Dates: start: 20111206, end: 20120410
  2. LEVOFOLINATE [Suspect]
     Indication: COLON CANCER RECURRENT
     Route: 041
     Dates: start: 20111206, end: 20120410
  3. ELPLAT [Suspect]
     Indication: COLON CANCER RECURRENT
     Dosage: UNCERTAIN DOSAGE AND 11 COURSE
     Route: 041
     Dates: start: 20111206, end: 20120410
  4. 5-FU [Concomitant]
     Indication: COLON CANCER RECURRENT
     Dosage: UNCERTAIN DOSAGE AND 11 COURSE
     Route: 040
     Dates: end: 201204
  5. 5-FU [Concomitant]
     Indication: COLON CANCER
     Dosage: UNCERTAIN DOSAGE AND 11 COURSE
     Route: 041
     Dates: end: 201204
  6. 5-FU [Concomitant]
     Indication: COLON CANCER
     Dosage: DOSAGE IS UNCERTAIN.
     Route: 040
     Dates: start: 2012
  7. 5-FU [Concomitant]
     Indication: COLON CANCER
     Dosage: DOSAGE IS UNCERTAIN.
     Route: 041
     Dates: start: 2012
  8. LOXONIN [Concomitant]
     Route: 048
     Dates: start: 20111115
  9. GRANISETRON [Concomitant]
     Indication: PROPHYLAXIS OF NAUSEA AND VOMITING
     Route: 041
     Dates: start: 20111206, end: 20120410
  10. DEXART [Concomitant]
     Indication: PROPHYLAXIS
     Route: 041
     Dates: start: 20111206, end: 20120508

REACTIONS (5)
  - Disseminated intravascular coagulation [Recovered/Resolved]
  - Haemoptysis [Recovered/Resolved]
  - Dyspnoea [Recovered/Resolved]
  - Cold sweat [Recovered/Resolved]
  - Back pain [Recovered/Resolved]
